FAERS Safety Report 7831074-3 (Version None)
Quarter: 2011Q4

REPORT INFORMATION
  Report Type: 
  Country: None (occurrence: None)
  Receive Date: 20111021
  Receipt Date: 20111014
  Transmission Date: 20120403
  Serious: Yes (Other)
  Sender: FDA-Public Use
  Company Number: PHEH2011US06843

PATIENT
  Sex: Male

DRUGS (1)
  1. EXFORGE HCT [Suspect]

REACTIONS (1)
  - THROMBOSIS [None]
